FAERS Safety Report 19377912 (Version 1)
Quarter: 2021Q2

REPORT INFORMATION
  Report Type: Spontaneous
  Country: JP (occurrence: JP)
  Receive Date: 20210605
  Receipt Date: 20210605
  Transmission Date: 20210717
  Serious: Yes (Other)
  Sender: FDA-Public Use
  Company Number: JP-LUPIN PHARMACEUTICALS INC.-2021-08598

PATIENT
  Age: 56 Year
  Sex: Male
  Weight: 56 kg

DRUGS (3)
  1. FAVIPIRAVIR [Suspect]
     Active Substance: FAVIPIRAVIR
     Indication: COVID-19
     Dosage: UNK
     Route: 065
  2. METHYLPREDNISOLONE. [Suspect]
     Active Substance: METHYLPREDNISOLONE
     Indication: SEVERE ACUTE RESPIRATORY SYNDROME
     Dosage: 1 MILLIGRAM/KILOGRAM, QD
     Route: 065
  3. HEPARIN [Concomitant]
     Active Substance: HEPARIN SODIUM
     Indication: ANTICOAGULANT THERAPY
     Dosage: UNK (INTRAVENOUS INFUSION )
     Route: 042

REACTIONS (1)
  - Off label use [Unknown]
